FAERS Safety Report 24241445 (Version 1)
Quarter: 2024Q3

REPORT INFORMATION
  Report Type: Spontaneous
  Country: CA (occurrence: CA)
  Receive Date: 20240823
  Receipt Date: 20240823
  Transmission Date: 20241017
  Serious: Yes (Other)
  Sender: CELLTRION
  Company Number: CA-PFIZER INC-202400213273

PATIENT

DRUGS (18)
  1. INFLECTRA [Suspect]
     Active Substance: INFLIXIMAB-DYYB
     Indication: Crohn^s disease
     Dosage: 500 MG (INDUCTION DOSES AT WEEK 0, 2 AND 6, THEN EVERY 8 WEEKS)
     Route: 042
     Dates: start: 20180329, end: 20180511
  2. INFLECTRA [Suspect]
     Active Substance: INFLIXIMAB-DYYB
     Dosage: 500 MG (EVERY 4 WEEKS)
     Route: 042
     Dates: start: 20180606, end: 20190415
  3. INFLECTRA [Suspect]
     Active Substance: INFLIXIMAB-DYYB
     Dosage: 600 MG (EVERY 4 WEEKS)
     Route: 042
     Dates: start: 20190513, end: 20200715
  4. INFLECTRA [Suspect]
     Active Substance: INFLIXIMAB-DYYB
     Dosage: 10 MG/KG (EVERY 4 WEEKS, ROUNDED TO THE NEAREST HUNDRED)
     Route: 042
     Dates: start: 20200820
  5. INFLECTRA [Suspect]
     Active Substance: INFLIXIMAB-DYYB
     Dosage: 10 MG/KG (EVERY 4 WEEKS, ROUNDED TO THE NEAREST HUNDRED)
     Route: 042
     Dates: start: 20240618
  6. INFLECTRA [Suspect]
     Active Substance: INFLIXIMAB-DYYB
     Dosage: 10 MG/KG (EVERY 4 WEEKS, ROUNDED TO THE NEAREST HUNDRED)
     Route: 042
     Dates: start: 20240716
  7. INFLECTRA [Suspect]
     Active Substance: INFLIXIMAB-DYYB
     Dosage: 700 MG, EVERY 4 WEEKS (10 MG/KG,ROUNDED TO THE NEAREST HUNDRED)
     Route: 042
     Dates: start: 20240813
  8. METHOTREXATE [Concomitant]
     Active Substance: METHOTREXATE
     Dosage: 1 DF,DOSAGE NOT AVAILABLE
     Route: 065
     Dates: start: 2015, end: 2016
  9. METHOTREXATE [Concomitant]
     Active Substance: METHOTREXATE
     Dosage: 1 DF ,DOSAGE NOT AVAILABLE
     Route: 065
     Dates: start: 20180329
  10. LOMOTIL [Concomitant]
     Active Substance: ATROPINE SULFATE\DIPHENOXYLATE HYDROCHLORIDE
     Dosage: 1 DF,DOSAGE NOT AVAILABLE
     Route: 065
  11. MORPHINE [Concomitant]
     Active Substance: MORPHINE
     Dosage: 1 DF,DOSAGE NOT AVAILABLE - UNKNOWN IF ONGOING
     Route: 065
  12. CORTISONE [Concomitant]
     Active Substance: CORTISONE
     Indication: Arthritis
     Dosage: 1 DF,DOSAGE NOT AVAILABLE
     Route: 065
  13. DILAUDID [Concomitant]
     Active Substance: HYDROMORPHONE HYDROCHLORIDE
     Dosage: 2 MG (EVERY 4 TO 6 HOURS AS NEEDED)
     Route: 065
  14. FOLIC ACID [Concomitant]
     Active Substance: FOLIC ACID
     Dosage: 1 DF, 1X/DAY,DOSAGE NOT AVAILABLE
     Route: 065
  15. ACETAMINOPHEN\TRAMADOL [Concomitant]
     Active Substance: ACETAMINOPHEN\TRAMADOL
     Dosage: 1 DF,DOSAGE NOT AVAILABLE - UNKNOWN IF ONGOING
     Route: 065
  16. FLAGYL [Concomitant]
     Active Substance: METRONIDAZOLE\METRONIDAZOLE HYDROCHLORIDE
     Dosage: 1 DF,DOSAGE NOT AVAILABLE - UNKNOWN IF ONGOING
     Route: 065
  17. PREDNISONE [Concomitant]
     Active Substance: PREDNISONE
     Dosage: 30 MG,UNKNOWN IF ONGOING
     Route: 065
  18. K DUR [Concomitant]
     Dosage: 1 DF,DOSAGE NOT AVAILABLE - UNKNOWN IF ONGOING
     Route: 065

REACTIONS (1)
  - Abortion spontaneous [Recovered/Resolved]

NARRATIVE: CASE EVENT DATE: 20240101
